FAERS Safety Report 7984632-X (Version None)
Quarter: 2011Q4

REPORT INFORMATION
  Report Type: 
  Country: None (occurrence: None)
  Receive Date: 20111216
  Receipt Date: 20111212
  Transmission Date: 20120403
  Serious: Yes (Other)
  Sender: FDA-Public Use
  Company Number: ES-ROXANE LABORATORIES, INC.-2011-RO-01799RO

PATIENT
  Age: 34 Year
  Sex: Male

DRUGS (4)
  1. DEXAMETHASONE TABLETS USP, 1.5 MG [Suspect]
     Dosage: 1 MG
  2. DEXAMETHASONE TABLETS USP, 1.5 MG [Suspect]
     Indication: CEREBRAL OEDEMA MANAGEMENT
  3. LENITOIN [Suspect]
     Indication: CONVULSION PROPHYLAXIS
     Dosage: 300 MG
  4. LEVETIRACETAM [Suspect]
     Indication: CONVULSION PROPHYLAXIS
     Dosage: 1000 MG

REACTIONS (3)
  - CUSHINGOID [None]
  - PANNICULITIS [None]
  - WEIGHT INCREASED [None]
